FAERS Safety Report 23416314 (Version 1)
Quarter: 2024Q1

REPORT INFORMATION
  Report Type: Spontaneous
  Country: None (occurrence: US)
  Receive Date: 20240118
  Receipt Date: 20240118
  Transmission Date: 20240410
  Serious: No
  Sender: FDA-Public Use
  Company Number: US-Intersect Ent, Inc.-2151478

PATIENT
  Sex: Female

DRUGS (1)
  1. SINUVA [Suspect]
     Active Substance: MOMETASONE FUROATE
     Indication: Nasal polyps
     Route: 006
     Dates: start: 20230907

REACTIONS (3)
  - Nasal crusting [None]
  - Paranasal sinus discomfort [None]
  - Nasal congestion [None]
